FAERS Safety Report 9888544 (Version 1)
Quarter: 2014Q1

REPORT INFORMATION
  Report Type: Spontaneous
  Country: US (occurrence: US)
  Receive Date: 20140211
  Receipt Date: 20140211
  Transmission Date: 20141002
  Serious: Yes (Hospitalization)
  Sender: FDA-Public Use
  Company Number: US-B.I. PHARMACEUTICALS,INC./RIDGEFIELD-2014-BI-05982BP

PATIENT
  Age: 68 Year
  Sex: Male
  Weight: 74 kg

DRUGS (4)
  1. SPIRIVA [Suspect]
     Indication: CHRONIC OBSTRUCTIVE PULMONARY DISEASE
     Dosage: 18 MCG
     Route: 055
  2. SPIRIVA [Suspect]
     Dosage: 18 MCG
     Route: 048
  3. MORPHINE ER [Concomitant]
     Indication: PAIN
     Dosage: 60 MG
     Route: 048
  4. MORPHINE [Concomitant]
     Indication: PAIN
     Route: 048

REACTIONS (4)
  - Fracture [Not Recovered/Not Resolved]
  - Fall [Recovered/Resolved]
  - Back pain [Not Recovered/Not Resolved]
  - Incorrect route of drug administration [Recovered/Resolved]
